FAERS Safety Report 23737048 (Version 1)
Quarter: 2024Q2

REPORT INFORMATION
  Report Type: Spontaneous
  Country: US (occurrence: US)
  Receive Date: 20240412
  Receipt Date: 20240412
  Transmission Date: 20240716
  Serious: Yes (Other)
  Sender: FDA-Public Use
  Company Number: US-MSNLABS-2024MSNLIT00841

PATIENT

DRUGS (3)
  1. DEFERASIROX [Suspect]
     Active Substance: DEFERASIROX
     Indication: Overchelation
     Dosage: 720 MG BID INITIALLY
     Route: 048
  2. DEFERASIROX [Suspect]
     Active Substance: DEFERASIROX
     Dosage: 720 MG DAILY FOR 1 YEAR
     Route: 048
  3. DEFERASIROX [Suspect]
     Active Substance: DEFERASIROX
     Dosage: 360 MG DAILY FOR 1 MONTH
     Route: 048

REACTIONS (1)
  - Retinopathy [Unknown]
